FAERS Safety Report 7255596-1 (Version None)
Quarter: 2011Q1

REPORT INFORMATION
  Report Type: 
  Country: None (occurrence: None)
  Receive Date: 20110129
  Receipt Date: 20100405
  Transmission Date: 20110831
  Serious: No
  Sender: FDA-Public Use
  Company Number: US-ABBOTT-10P-163-0637172-00

PATIENT
  Sex: Female
  Weight: 69.008 kg

DRUGS (4)
  1. PAXIL [Concomitant]
     Indication: PRODUCT USED FOR UNKNOWN INDICATION
  2. UNKNOWN HORMONE REPLACEMENT MEDICATION [Concomitant]
     Indication: HYSTERECTOMY
  3. TRAMADOL HCL [Concomitant]
     Indication: INFLAMMATORY PAIN
     Route: 048
     Dates: start: 20090501
  4. HUMIRA [Suspect]
     Indication: CROHN'S DISEASE
     Route: 058
     Dates: start: 20090901

REACTIONS (3)
  - ARTHRALGIA [None]
  - MUSCULOSKELETAL STIFFNESS [None]
  - GAIT DISTURBANCE [None]
